FAERS Safety Report 6765598-7 (Version None)
Quarter: 2010Q2

REPORT INFORMATION
  Report Type: 
  Country: None (occurrence: None)
  Receive Date: 20100611
  Receipt Date: 20100602
  Transmission Date: 20101027
  Serious: Yes (Other)
  Sender: FDA-Public Use
  Company Number: SE-PFIZER INC-2010068931

PATIENT
  Age: 65 Year
  Sex: Female

DRUGS (2)
  1. CELEBRA [Suspect]
     Indication: OSTEOARTHRITIS
     Dosage: 200 MG, 2X/DAY
  2. ATACAND [Concomitant]
     Dosage: UNK

REACTIONS (2)
  - THROMBOSIS [None]
  - VISUAL ACUITY REDUCED [None]
